FAERS Safety Report 21939551 (Version 1)
Quarter: 2023Q1

REPORT INFORMATION
  Report Type: Report from Study
  Country: US (occurrence: US)
  Receive Date: 20230201
  Receipt Date: 20230201
  Transmission Date: 20230417
  Serious: No
  Sender: FDA-Public Use
  Company Number: US-EXELIXIS-CABO-22047915

PATIENT
  Sex: Male

DRUGS (5)
  1. CABOMETYX [Suspect]
     Active Substance: CABOZANTINIB S-MALATE
     Indication: Renal cancer
     Dosage: 40 MG, QD
     Dates: start: 20211209
  2. OPDIVO [Suspect]
     Active Substance: NIVOLUMAB
     Indication: Renal cancer
     Dosage: UNK, Q2WEEKS
     Dates: start: 20211209
  3. HYDROMORPHONE [Concomitant]
     Active Substance: HYDROMORPHONE
  4. MS CONTIN [Concomitant]
     Active Substance: MORPHINE SULFATE
  5. STOOL SOFTENER (DOCUSATE) [Concomitant]
     Active Substance: DOCUSATE

REACTIONS (8)
  - Oxygen saturation decreased [Not Recovered/Not Resolved]
  - Ageusia [Unknown]
  - Oral pain [Unknown]
  - Dry skin [Not Recovered/Not Resolved]
  - Nausea [Unknown]
  - Stomatitis [Recovered/Resolved]
  - Lung neoplasm [Unknown]
  - Malignant neoplasm progression [Unknown]
